FAERS Safety Report 4449862-2 (Version None)
Quarter: 2004Q3

REPORT INFORMATION
  Report Type: 
  Country: None (occurrence: None)
  Receive Date: 20040803
  Receipt Date: 20040430
  Transmission Date: 20050211
  Serious: Yes (Death, Other)
  Sender: FDA-Public Use
  Company Number: 2004211486JP

PATIENT
  Age: 82 Year
  Sex: Female
  Weight: 48 kg

DRUGS (2)
  1. CAMPTOSAR [Suspect]
     Indication: OVARIAN CANCER
     Dosage: 80 MG, CYCLIC, IV DRIP
     Route: 041
     Dates: start: 20040305, end: 20040305
  2. PARAPLATIN [Suspect]
     Indication: OVARIAN CANCER
     Dosage: 250 MG, CYCLIC, IV DRIP
     Route: 041
     Dates: start: 20040305, end: 20040305

REACTIONS (1)
  - DEATH [None]
